FAERS Safety Report 9859684 (Version 3)
Quarter: 2014Q1

REPORT INFORMATION
  Report Type: Spontaneous
  Country: BR (occurrence: BR)
  Receive Date: 20140131
  Receipt Date: 20140321
  Transmission Date: 20141002
  Serious: Yes (Life-Threatening, Other)
  Sender: FDA-Public Use
  Company Number: BR-ABBVIE-14P-020-1196580-00

PATIENT
  Age: 46 Year
  Sex: Male
  Weight: 93 kg

DRUGS (2)
  1. HUMIRA [Suspect]
     Indication: ANKYLOSING SPONDYLITIS
     Route: 058
     Dates: start: 201209, end: 201401
  2. INDOMETACIN [Concomitant]
     Indication: ANKYLOSING SPONDYLITIS

REACTIONS (4)
  - Ascites [Not Recovered/Not Resolved]
  - Peritoneal tuberculosis [Unknown]
  - Pyrexia [Unknown]
  - Weight decreased [Unknown]
